FAERS Safety Report 5857438-5 (Version None)
Quarter: 2008Q3

REPORT INFORMATION
  Report Type: 
  Country: None (occurrence: None)
  Receive Date: 20080825
  Receipt Date: 20080825
  Transmission Date: 20090109
  Serious: No
  Sender: FDA-Public Use
  Company Number: None

PATIENT
  Age: 45 Year
  Sex: Female
  Weight: 67.586 kg

DRUGS (1)
  1. LYRICA [Suspect]
     Indication: FIBROMYALGIA
     Dosage: 1 PILL ONCE
     Dates: start: 20080821, end: 20080821

REACTIONS (8)
  - AMNESIA [None]
  - ASTHENIA [None]
  - CHEST DISCOMFORT [None]
  - DRUG HYPERSENSITIVITY [None]
  - DRY MOUTH [None]
  - FEELING ABNORMAL [None]
  - FEELING HOT [None]
  - LOSS OF CONSCIOUSNESS [None]
